FAERS Safety Report 16841669 (Version 2)
Quarter: 2019Q4

REPORT INFORMATION
  Report Type: Report from Study
  Country: NL (occurrence: NL)
  Receive Date: 20190923
  Receipt Date: 20191002
  Transmission Date: 20200122
  Serious: Yes (Hospitalization)
  Sender: FDA-Public Use
  Company Number: NL-PFIZER INC-2019398434

PATIENT
  Age: 54 Year
  Sex: Female

DRUGS (5)
  1. PALBOCICLIB [Suspect]
     Active Substance: PALBOCICLIB
     Indication: OVARIAN CANCER METASTATIC
     Dosage: 125 MG, 1X/DAY(FOR 3 WEEKS)
     Route: 048
     Dates: start: 20190717, end: 20190910
  2. LORAZEPAM. [Concomitant]
     Active Substance: LORAZEPAM
     Dosage: 1 MG, AS NEEDED
     Dates: start: 20190809
  3. XARELTO [Concomitant]
     Active Substance: RIVAROXABAN
     Dosage: 20 MG, AS NEEDED
     Dates: start: 20190415
  4. OXAZEPAM. [Concomitant]
     Active Substance: OXAZEPAM
     Dosage: 30 MG, AS NEEDED
     Dates: start: 20190912
  5. METOPROLOL. [Concomitant]
     Active Substance: METOPROLOL
     Dosage: 50 MG, UNK
     Dates: start: 20130107

REACTIONS (1)
  - Abdominal pain upper [Recovered/Resolved]

NARRATIVE: CASE EVENT DATE: 20190910
